FAERS Safety Report 9567829 (Version 2)
Quarter: 2013Q3

REPORT INFORMATION
  Report Type: Spontaneous
  Country: US (occurrence: US)
  Receive Date: 20130930
  Receipt Date: 20130930
  Transmission Date: 20140515
  Serious: Yes (Other)
  Sender: FDA-Public Use
  Company Number: US-AMGEN-USASP2012075862

PATIENT
  Age: 77 Year
  Sex: Female

DRUGS (2)
  1. ENBREL [Suspect]
     Indication: RHEUMATOID ARTHRITIS
     Dosage: 50 MG, QWK
     Route: 058
     Dates: start: 20120913, end: 201212
  2. METHOTREXATE [Concomitant]
     Dosage: 12.5 MG, QWK
     Route: 048
     Dates: start: 2006

REACTIONS (5)
  - Basal cell carcinoma [Recovered/Resolved]
  - Oedema peripheral [Recovered/Resolved]
  - Increased appetite [Not Recovered/Not Resolved]
  - Local swelling [Not Recovered/Not Resolved]
  - Adverse event [Recovered/Resolved]
